FAERS Safety Report 5975668-9 (Version None)
Quarter: 2008Q4

REPORT INFORMATION
  Report Type: 
  Country: None (occurrence: None)
  Receive Date: 20081202
  Receipt Date: 20081126
  Transmission Date: 20090506
  Serious: Yes (Death)
  Sender: FDA-Public Use
  Company Number: PHHY2008DE29157

PATIENT
  Sex: Male

DRUGS (1)
  1. CORDINATE [Suspect]
     Dosage: 320 MG
     Route: 048

REACTIONS (2)
  - PROSTATE CANCER [None]
  - SENILE DEMENTIA [None]
